FAERS Safety Report 9421125 (Version 1)
Quarter: 2013Q3

REPORT INFORMATION
  Report Type: Spontaneous
  Country: CH (occurrence: CH)
  Receive Date: 20130725
  Receipt Date: 20130725
  Transmission Date: 20140515
  Serious: Yes (Hospitalization)
  Sender: FDA-Public Use
  Company Number: PHHY2013CH077560

PATIENT
  Sex: Male

DRUGS (1)
  1. SIMCORA [Suspect]
     Indication: BLOOD CHOLESTEROL INCREASED
     Dosage: 40 MG, QD

REACTIONS (2)
  - VIIth nerve paralysis [Recovering/Resolving]
  - Diplopia [Recovering/Resolving]
